FAERS Safety Report 17308782 (Version 1)
Quarter: 2020Q1

REPORT INFORMATION
  Report Type: Spontaneous
  Country: US (occurrence: US)
  Receive Date: 20200123
  Receipt Date: 20200123
  Transmission Date: 20200409
  Serious: Yes (Hospitalization)
  Sender: FDA-Public Use
  Company Number: None

PATIENT
  Age: 64 Year
  Sex: Male
  Weight: 107 kg

DRUGS (1)
  1. AMLODAPINE/OLMESARTAN [Suspect]
     Active Substance: AMLODIPINE BESYLATE\OLMESARTAN MEDOXOMIL
     Indication: HYPERTENSION
     Route: 048
     Dates: start: 20191201, end: 20200106

REACTIONS (2)
  - Therapeutic response decreased [None]
  - Blood pressure increased [None]

NARRATIVE: CASE EVENT DATE: 20200106
